FAERS Safety Report 10090208 (Version 2)
Quarter: 2014Q2

REPORT INFORMATION
  Report Type: Report from Study
  Country: JP (occurrence: JP)
  Receive Date: 20140421
  Receipt Date: 20140515
  Transmission Date: 20141212
  Serious: Yes (Death)
  Sender: FDA-Public Use
  Company Number: JP-SA-2014SA051635

PATIENT
  Sex: Male

DRUGS (5)
  1. DOCETAXEL [Suspect]
     Indication: PROSTATE CANCER
     Dosage: 3 TIMES AT AN INTERVAL OF 4 WEEKS.
     Route: 065
  2. THERAPEUTIC RADIOPHARMACEUTICALS [Suspect]
     Indication: PROSTATE CANCER
     Route: 065
  3. PREDNISOLONE [Concomitant]
     Indication: METASTASES TO BONE
  4. ZOLEDRONATE [Concomitant]
     Indication: METASTASES TO BONE
  5. DENOSUMAB [Concomitant]
     Indication: METASTASES TO BONE

REACTIONS (1)
  - Gastrointestinal perforation [Fatal]
